FAERS Safety Report 21373207 (Version 4)
Quarter: 2023Q2

REPORT INFORMATION
  Report Type: Spontaneous
  Country: US (occurrence: US)
  Receive Date: 20220924
  Receipt Date: 20230628
  Transmission Date: 20230721
  Serious: No
  Sender: FDA-Public Use
  Company Number: US-CTI BIOPHARMA-2022US02976

PATIENT

DRUGS (2)
  1. VONJO [Suspect]
     Active Substance: PACRITINIB
     Indication: Myelofibrosis
     Dosage: 100 MG, QD
     Route: 048
     Dates: start: 20220802
  2. VONJO [Suspect]
     Active Substance: PACRITINIB
     Dosage: 200 MILLIGRAM, BID
     Route: 048
     Dates: start: 20220802

REACTIONS (20)
  - Tremor [Unknown]
  - Chills [Unknown]
  - Arthralgia [Unknown]
  - Skin atrophy [Unknown]
  - Decreased appetite [Unknown]
  - Abdominal distension [Unknown]
  - Flatulence [Unknown]
  - Feeling hot [Unknown]
  - Therapy change [Unknown]
  - Joint stiffness [Unknown]
  - Gait disturbance [Unknown]
  - Blister [Recovering/Resolving]
  - Back disorder [Unknown]
  - Weight increased [Unknown]
  - Renal disorder [Not Recovered/Not Resolved]
  - Muscular weakness [Recovering/Resolving]
  - Fluid retention [Unknown]
  - Rash [Unknown]
  - Peripheral swelling [Not Recovered/Not Resolved]
  - Dyspnoea [Unknown]

NARRATIVE: CASE EVENT DATE: 20220816
